FAERS Safety Report 24756193 (Version 1)
Quarter: 2024Q4

REPORT INFORMATION
  Report Type: Spontaneous
  Country: US (occurrence: US)
  Receive Date: 20241220
  Receipt Date: 20241220
  Transmission Date: 20250115
  Serious: Yes (Other)
  Sender: STRIDES
  Company Number: US-STRIDES ARCOLAB LIMITED-2024SP000573

PATIENT
  Age: 60 Year
  Sex: Male

DRUGS (15)
  1. VALGANCICLOVIR HYDROCHLORIDE [Suspect]
     Active Substance: VALGANCICLOVIR HYDROCHLORIDE
     Indication: Antiviral prophylaxis
     Dosage: UNK, PROPHYLAXIS TREATMENT
     Route: 065
  2. VALGANCICLOVIR HYDROCHLORIDE [Suspect]
     Active Substance: VALGANCICLOVIR HYDROCHLORIDE
     Indication: Cytomegalovirus colitis
     Dosage: 900 MILLIGRAM, DAILY
     Route: 048
  3. GANCICLOVIR [Suspect]
     Active Substance: GANCICLOVIR
     Indication: Cytomegalovirus colitis
     Dosage: 5 MILLIGRAM/KILOGRAM, EVERY 12 HRS
     Route: 065
  4. GANCICLOVIR [Suspect]
     Active Substance: GANCICLOVIR
     Dosage: UNK, ANOTHER INDUCTION COURSE
     Route: 065
  5. PREDNISONE [Concomitant]
     Active Substance: PREDNISONE
     Indication: Immunosuppressant drug therapy
     Dosage: 20 MILLIGRAM, PER DAY
     Route: 065
  6. PREDNISONE [Concomitant]
     Active Substance: PREDNISONE
     Indication: Inflammatory bowel disease
     Dosage: 40 MILLIGRAM, DAILY
     Route: 065
  7. PREDNISONE [Concomitant]
     Active Substance: PREDNISONE
     Indication: Liver transplant
     Dosage: 20 MILLIGRAM, PER DAY
     Route: 065
  8. MYCOPHENOLIC ACID [Concomitant]
     Active Substance: MYCOPHENOLIC ACID
     Indication: Immunosuppressant drug therapy
     Dosage: 1000 MILLIGRAM
     Route: 065
  9. MYCOPHENOLIC ACID [Concomitant]
     Active Substance: MYCOPHENOLIC ACID
     Indication: Liver transplant
  10. MYCOPHENOLIC ACID [Concomitant]
     Active Substance: MYCOPHENOLIC ACID
     Indication: Immunosuppressant drug therapy
     Dosage: 720 MILLIGRAM, QD
     Route: 065
  11. MYCOPHENOLIC ACID [Concomitant]
     Active Substance: MYCOPHENOLIC ACID
     Indication: Liver transplant
  12. TACROLIMUS [Concomitant]
     Active Substance: TACROLIMUS
     Indication: Immunosuppressant drug therapy
     Dosage: UNK
     Route: 065
  13. TACROLIMUS [Concomitant]
     Active Substance: TACROLIMUS
     Indication: Liver transplant
  14. MARIBAVIR [Concomitant]
     Active Substance: MARIBAVIR
     Indication: Cytomegalovirus infection
     Dosage: 400 MILLIGRAM, EVERY 12 HRS
     Route: 065
  15. LETERMOVIR [Concomitant]
     Active Substance: LETERMOVIR
     Indication: Antiviral prophylaxis
     Dosage: 480 MILLIGRAM. PER DAY
     Route: 065

REACTIONS (1)
  - Neutropenia [Unknown]
